FAERS Safety Report 18273094 (Version 1)
Quarter: 2020Q3

REPORT INFORMATION
  Report Type: Spontaneous
  Country: US (occurrence: US)
  Receive Date: 20200916
  Receipt Date: 20200916
  Transmission Date: 20201103
  Serious: Yes (Other)
  Sender: FDA-Public Use
  Company Number: None

PATIENT
  Sex: Female
  Weight: 17.69 kg

DRUGS (6)
  1. VITAMINS/TUMERIC [Concomitant]
  2. DR. SINATRA^S OMEGA Q PLUS [Concomitant]
  3. MAGNESIUM COMPLEX [Concomitant]
  4. CAYENNE PEPPER [Concomitant]
     Active Substance: CAPSICUM
  5. ESCITALOPRAM 10MG [Suspect]
     Active Substance: ESCITALOPRAM OXALATE
     Indication: PAIN
  6. ESCITALOPRAM 10MG [Suspect]
     Active Substance: ESCITALOPRAM OXALATE
     Indication: FIBROMYALGIA
     Dosage: ?          QUANTITY:1 DF DOSAGE FORM;?
     Route: 048
     Dates: start: 20180809, end: 20191002

REACTIONS (15)
  - Muscle rigidity [None]
  - Balance disorder [None]
  - Headache [None]
  - Vomiting [None]
  - Ocular hyperaemia [None]
  - Asthenia [None]
  - Cognitive disorder [None]
  - Eye pain [None]
  - Confusional state [None]
  - Hyperhidrosis [None]
  - Hallucination [None]
  - Arthralgia [None]
  - Palpitations [None]
  - Nausea [None]
  - Hypertension [None]
